FAERS Safety Report 19145459 (Version 2)
Quarter: 2021Q2

REPORT INFORMATION
  Report Type: Spontaneous
  Country: CO (occurrence: CO)
  Receive Date: 20210416
  Receipt Date: 20210621
  Transmission Date: 20210717
  Serious: Yes (Other)
  Sender: FDA-Public Use
  Company Number: CO-BAYER-2021-120418

PATIENT
  Age: 29 Year
  Sex: Male
  Weight: 54.5 kg

DRUGS (2)
  1. KOVALTRY [Suspect]
     Active Substance: ANTIHEMOPHILIC FACTOR, HUMAN RECOMBINANT
     Indication: FACTOR VIII DEFICIENCY
     Dosage: 2000 U, TIW; MONDAY, WEDNESDAY, AND FRIDAY
     Route: 042
     Dates: start: 20210327
  2. KOVALTRY [Suspect]
     Active Substance: ANTIHEMOPHILIC FACTOR, HUMAN RECOMBINANT
     Indication: FACTOR VIII DEFICIENCY
     Dosage: 2000 IU ? PROPHYLAXIS ON MONDAY?WEDNESDAY?FRIDAY
     Route: 042

REACTIONS (8)
  - Paraesthesia [Recovered/Resolved]
  - Heart rate increased [Recovered/Resolved]
  - Sensory disturbance [Unknown]
  - Blood pressure increased [Recovered/Resolved]
  - Paraesthesia [Unknown]
  - Asthenia [Unknown]
  - Chills [Recovered/Resolved]
  - Dizziness [Recovered/Resolved]

NARRATIVE: CASE EVENT DATE: 20210405
